FAERS Safety Report 5158281-5 (Version None)
Quarter: 2006Q4

REPORT INFORMATION
  Report Type: 
  Country: None (occurrence: None)
  Receive Date: 20061117
  Receipt Date: 20061106
  Transmission Date: 20070319
  Serious: Yes (Hospitalization, Other)
  Sender: FDA-Public Use
  Company Number: DEWYE423906NOV06

PATIENT
  Age: 92 Year
  Sex: Female

DRUGS (12)
  1. VENLAFAXINE HCL [Suspect]
     Dosage: SEE IMAGE
     Route: 048
     Dates: start: 20051207, end: 20051208
  2. VENLAFAXINE HCL [Suspect]
     Dosage: SEE IMAGE
     Route: 048
     Dates: start: 20051208, end: 20051213
  3. METOPROLOL SUCCINATE [Suspect]
     Dosage: 37.5 MG ORAL
     Route: 048
     Dates: start: 20040301, end: 20051213
  4. PANTOPRAZOLE SODIUM [Suspect]
     Dosage: 20 MG ORAL
     Route: 048
     Dates: start: 20050901, end: 20051213
  5. SEROQUEL [Suspect]
     Dosage: SEE IMAGE
     Dates: start: 20051212, end: 20051212
  6. SEROQUEL [Suspect]
     Dosage: SEE IMAGE
     Dates: start: 20051213
  7. DIGITOXIN TAB [Concomitant]
  8. CYNT (MOXONIDINE) [Concomitant]
  9. PREDNISOLONE [Concomitant]
  10. ZOPICLONE (ZOPICLONE) [Concomitant]
  11. COTRIM [Concomitant]
  12. NOVONORM (REPAGLINIDE) [Concomitant]

REACTIONS (5)
  - DIZZINESS [None]
  - DRUG INTERACTION [None]
  - HYPOTONIA [None]
  - SUPRAVENTRICULAR EXTRASYSTOLES [None]
  - VENTRICULAR EXTRASYSTOLES [None]
